FAERS Safety Report 17326459 (Version 2)
Quarter: 2020Q2

REPORT INFORMATION
  Report Type: Report from Study
  Country: US (occurrence: US)
  Receive Date: 20200127
  Receipt Date: 20200430
  Transmission Date: 20200713
  Serious: Yes (Other)
  Sender: FDA-Public Use
  Company Number: US-009507513-2001USA008781

PATIENT
  Age: 45 Year
  Sex: Male

DRUGS (1)
  1. NOXAFIL [Suspect]
     Active Substance: POSACONAZOLE
     Dosage: 100 MILLIGRAM, TID (ONE TABLET IN THE MORNING AND TWO TABLES AT NIGHT)
     Route: 048

REACTIONS (6)
  - Malaise [Unknown]
  - Terminal state [Unknown]
  - Product dose omission [Unknown]
  - Product dose omission [Unknown]
  - Product dose omission [Unknown]
  - Irritability [Unknown]

NARRATIVE: CASE EVENT DATE: 20190523
